FAERS Safety Report 14661897 (Version 1)
Quarter: 2018Q1

REPORT INFORMATION
  Report Type: Report from Study
  Country: BR (occurrence: BR)
  Receive Date: 20180320
  Receipt Date: 20180320
  Transmission Date: 20180509
  Serious: Yes (Hospitalization)
  Sender: FDA-Public Use
  Company Number: BR-BIOGEN-2018BI00543493

PATIENT
  Age: 55 Year
  Sex: Female

DRUGS (1)
  1. AVONEX [Suspect]
     Active Substance: INTERFERON BETA-1A
     Indication: MULTIPLE SCLEROSIS
     Route: 030
     Dates: start: 200606, end: 201712

REACTIONS (4)
  - Abscess [Unknown]
  - Decreased immune responsiveness [Not Recovered/Not Resolved]
  - Urinary tract infection [Unknown]
  - Septic shock [Unknown]

NARRATIVE: CASE EVENT DATE: 201712
